FAERS Safety Report 24690821 (Version 1)
Quarter: 2024Q4

REPORT INFORMATION
  Report Type: Spontaneous
  Country: US (occurrence: None)
  Receive Date: 20241202
  Receipt Date: 20241202
  Transmission Date: 20250114
  Serious: Yes (Other)
  Sender: Public
  Company Number: None

PATIENT
  Age: 11 Year
  Sex: Male
  Weight: 23.4 kg

DRUGS (5)
  1. DUPIXENT [Suspect]
     Active Substance: DUPILUMAB
     Indication: Eosinophilic oesophagitis
     Dosage: OTHER QUANTITY : 1 INJECTION(S);?OTHER FREQUENCY : EVERY OTHER WEEK;?
     Route: 058
     Dates: start: 20231023
  2. BUDESONIDE [Concomitant]
     Active Substance: BUDESONIDE
  3. cymbicort [Concomitant]
  4. Olly kids multi [Concomitant]
  5. TYLENOL [Concomitant]
     Active Substance: ACETAMINOPHEN

REACTIONS (3)
  - Groin pain [None]
  - Testicular pain [None]
  - Testicular torsion [None]

NARRATIVE: CASE EVENT DATE: 20241202
